FAERS Safety Report 19802023 (Version 4)
Quarter: 2021Q3

REPORT INFORMATION
  Report Type: Report from Study
  Country: None (occurrence: US)
  Receive Date: 20210908
  Receipt Date: 20210916
  Transmission Date: 20211014
  Serious: Yes (Hospitalization)
  Sender: FDA-Public Use
  Company Number: US-ABBVIE-21K-163-4064777-00

PATIENT
  Age: 72 Year
  Sex: Male

DRUGS (1)
  1. IMBRUVICA [Suspect]
     Active Substance: IBRUTINIB
     Indication: CHRONIC LYMPHOCYTIC LEUKAEMIA
     Route: 048
     Dates: start: 202108

REACTIONS (10)
  - Skin haemorrhage [Unknown]
  - Fatigue [Unknown]
  - Asthenia [Unknown]
  - Blood count abnormal [Unknown]
  - Pain in extremity [Unknown]
  - Erythema [Unknown]
  - Rash [Unknown]
  - Peripheral swelling [Unknown]
  - Arthralgia [Unknown]
  - Joint swelling [Unknown]

NARRATIVE: CASE EVENT DATE: 2021
